FAERS Safety Report 25423686 (Version 1)
Quarter: 2025Q2

REPORT INFORMATION
  Report Type: Spontaneous
  Country: US (occurrence: None)
  Receive Date: 20250609
  Receipt Date: 20250609
  Transmission Date: 20250717
  Serious: Yes (Other)
  Sender: FDA-CTU
  Company Number: None

PATIENT
  Age: 48 Year
  Sex: Male
  Weight: 66 kg

DRUGS (1)
  1. GADOLINIUM [Suspect]
     Active Substance: GADOLINIUM
     Indication: Magnetic resonance imaging
     Dates: start: 20250508, end: 20250508

REACTIONS (8)
  - Back pain [None]
  - Palpitations [None]
  - Neck pain [None]
  - Arthralgia [None]
  - Pain [None]
  - Dizziness [None]
  - Fatigue [None]
  - Exercise tolerance decreased [None]

NARRATIVE: CASE EVENT DATE: 20250508
